FAERS Safety Report 4613600-0 (Version None)
Quarter: 2005Q1

REPORT INFORMATION
  Report Type: 
  Country: None (occurrence: None)
  Receive Date: 20050321
  Receipt Date: 20050310
  Transmission Date: 20050727
  Serious: Yes (Hospitalization)
  Sender: FDA-Public Use
  Company Number: FR-JNJFOC-20050100371

PATIENT
  Age: 67 Year
  Sex: Male

DRUGS (6)
  1. DURAGESIC-100 [Suspect]
     Indication: CANCER PAIN
     Route: 062
  2. NEURONTIN [Concomitant]
     Route: 065
  3. VOLTAREN [Concomitant]
     Route: 065
  4. TRIFLUCAN [Concomitant]
     Route: 065
  5. DISTILBENE [Concomitant]
     Route: 065
  6. TIAPRIDAL [Concomitant]
     Route: 065

REACTIONS (1)
  - APPLICATION SITE REACTION [None]
